FAERS Safety Report 23810104 (Version 2)
Quarter: 2024Q2

REPORT INFORMATION
  Report Type: Spontaneous
  Country: US (occurrence: None)
  Receive Date: 20240502
  Receipt Date: 20240614
  Transmission Date: 20240716
  Serious: No
  Sender: FDA-Public Use
  Company Number: 2024A103001

PATIENT
  Age: 49 Year
  Sex: Male

DRUGS (1)
  1. QUETIAPINE [Suspect]
     Active Substance: QUETIAPINE
     Indication: Malignant catatonia
     Dosage: 20.0MG UNKNOWN
     Route: 048

REACTIONS (1)
  - Pyrexia [Unknown]
